FAERS Safety Report 10050999 (Version 3)
Quarter: 2014Q2

REPORT INFORMATION
  Report Type: Report from Study
  Country: MX (occurrence: MX)
  Receive Date: 20140401
  Receipt Date: 20140617
  Transmission Date: 20141212
  Serious: No
  Sender: FDA-Public Use
  Company Number: MX-BAYER-2014-045048

PATIENT
  Age: 27 Year
  Sex: Female
  Weight: 69.8 kg

DRUGS (5)
  1. DROSPIRENONE+ETHINYLESTRADIOL+L-5-METHYLTETRAHYDROFOLIC ACID-CA SA [Suspect]
     Indication: CONTRACEPTION
     Dosage: 1 DF, QD
     Route: 048
     Dates: start: 20131001, end: 20140315
  2. CAFIASPIRINA [Concomitant]
     Indication: HEADACHE
     Dosage: 500/30 MG
     Route: 048
     Dates: start: 201403, end: 201403
  3. LINCOMYCIN [Concomitant]
     Indication: PHARYNGITIS
     Dosage: 600 MG, QD
     Route: 048
     Dates: start: 20131219, end: 20131224
  4. AMBROXOL [Concomitant]
     Indication: PHARYNGITIS
     Dosage: 30 ML, QD
     Route: 048
     Dates: start: 20131223, end: 20131225
  5. IBUPROFEN [IBUPROFEN] [Concomitant]
     Indication: PHARYNGITIS
     Dosage: 1200 MG, QD
     Route: 048
     Dates: start: 20131223, end: 20131225

REACTIONS (2)
  - Anaemia [Recovered/Resolved]
  - Thrombocytopenia [Recovered/Resolved]
